FAERS Safety Report 11688959 (Version 4)
Quarter: 2017Q3

REPORT INFORMATION
  Report Type: Report from Study
  Country: US (occurrence: US)
  Receive Date: 20151102
  Receipt Date: 20170714
  Transmission Date: 20171127
  Serious: Yes (Hospitalization, Other)
  Sender: FDA-Public Use
  Company Number: US-AMGEN-USASL2015113658

PATIENT
  Age: 64 Year
  Sex: Female
  Weight: 60.32 kg

DRUGS (21)
  1. IMITREX [Concomitant]
     Active Substance: SUMATRIPTAN SUCCINATE
     Dosage: UNK
  2. PROCRIT [Suspect]
     Active Substance: ERYTHROPOIETIN
     Indication: ANAEMIA
     Dosage: 40000 UNIT, UNK
     Route: 065
  3. AMBIEN [Concomitant]
     Active Substance: ZOLPIDEM TARTRATE
     Dosage: 10 MG, EVERY NIGHT
  4. ASCORBATE [Concomitant]
     Dosage: UNK
  5. CYCLOBENZAPRINE. [Concomitant]
     Active Substance: CYCLOBENZAPRINE
     Dosage: UNK
  6. VITAMIN D [Concomitant]
     Active Substance: CHOLECALCIFEROL
     Dosage: UNK
  7. CYANOCOBALAMIN. [Concomitant]
     Active Substance: CYANOCOBALAMIN
     Dosage: UNK
  8. COUMADIN [Concomitant]
     Active Substance: WARFARIN SODIUM
     Dosage: 7.5 MG, 3 TIMES/WK
  9. PROCHLORPERAZINE. [Concomitant]
     Active Substance: PROCHLORPERAZINE
     Dosage: UNK
  10. COUMADIN [Concomitant]
     Active Substance: WARFARIN SODIUM
     Indication: PULMONARY THROMBOSIS
     Dosage: 5 MG, 4 TIMES/WK
  11. PROLIA [Suspect]
     Active Substance: DENOSUMAB
     Indication: OSTEOPOROSIS
     Dosage: UNK
     Route: 065
  12. EXJADE [Suspect]
     Active Substance: DEFERASIROX
     Indication: BLOOD CREATININE INCREASED
     Dosage: 500 MG, QD
     Route: 048
  13. EXJADE [Suspect]
     Active Substance: DEFERASIROX
     Dosage: 1000 MG, QD
     Route: 065
  14. FLUTICASONE. [Concomitant]
     Active Substance: FLUTICASONE
     Dosage: UNK
  15. GABAPENTIN. [Concomitant]
     Active Substance: GABAPENTIN
     Dosage: 300 MG, TID
  16. OXYCODONE [Concomitant]
     Active Substance: OXYCODONE
     Dosage: 20 MG, QD
  17. EXJADE [Suspect]
     Active Substance: DEFERASIROX
     Dosage: 2500 MG, QD
     Route: 065
     Dates: end: 201603
  18. LORAZEPAM. [Concomitant]
     Active Substance: LORAZEPAM
     Dosage: UNK
  19. PROCRIT [Suspect]
     Active Substance: ERYTHROPOIETIN
     Dosage: 60000 UNIT, UNK
     Route: 065
     Dates: start: 2006
  20. CALCIUM [Concomitant]
     Active Substance: CALCIUM
     Dosage: UNK
  21. POLYETHYLENE GLYCOL [Concomitant]
     Active Substance: POLYETHYLENE GLYCOLS
     Dosage: UNK

REACTIONS (25)
  - Pulmonary hypertension [Unknown]
  - Haematocrit decreased [Unknown]
  - Disease complication [Recovered/Resolved]
  - Haemolytic anaemia [Unknown]
  - Serum ferritin increased [Unknown]
  - Pulmonary embolism [Unknown]
  - Transfusion [Unknown]
  - Pneumonia [Unknown]
  - Liver function test abnormal [Recovered/Resolved]
  - Syncope [Recovered/Resolved]
  - Hospitalisation [Recovered/Resolved]
  - Leukocytosis [Unknown]
  - Malaise [Recovered/Resolved]
  - Condition aggravated [Recovered/Resolved]
  - Somnolence [Unknown]
  - Thrombocytosis [Unknown]
  - Fall [Unknown]
  - Rehabilitation therapy [Recovered/Resolved]
  - Infection [Unknown]
  - Pulmonary fibrosis [Unknown]
  - Cholecystectomy [Unknown]
  - Fatigue [Recovered/Resolved]
  - Lung disorder [Unknown]
  - Migraine [Unknown]
  - Iron overload [Unknown]

NARRATIVE: CASE EVENT DATE: 2014
